FAERS Safety Report 10782805 (Version 1)
Quarter: 2015Q1

REPORT INFORMATION
  Report Type: Report from Study
  Country: DE (occurrence: DE)
  Receive Date: 20150210
  Receipt Date: 20150210
  Transmission Date: 20150721
  Serious: Yes (Hospitalization, Other)
  Sender: FDA-Public Use
  Company Number: DE-ABBVIE-15K-062-1343845-00

PATIENT
  Sex: Male

DRUGS (5)
  1. MTX [Concomitant]
     Active Substance: METHOTREXATE SODIUM
     Dates: start: 2012, end: 2013
  2. MTX [Concomitant]
     Active Substance: METHOTREXATE SODIUM
     Dates: start: 2013
  3. HUMIRA [Suspect]
     Active Substance: ADALIMUMAB
     Indication: RHEUMATOID ARTHRITIS
     Route: 058
     Dates: start: 201203
  4. MTX [Concomitant]
     Active Substance: METHOTREXATE SODIUM
     Indication: PRODUCT USED FOR UNKNOWN INDICATION
     Dates: end: 2012
  5. MTX [Concomitant]
     Active Substance: METHOTREXATE SODIUM
     Dates: start: 2013, end: 2013

REACTIONS (3)
  - Intervertebral disc protrusion [Unknown]
  - Osteochondrosis [Unknown]
  - Spinal osteoarthritis [Unknown]

NARRATIVE: CASE EVENT DATE: 20140723
